FAERS Safety Report 15210906 (Version 1)
Quarter: 2018Q3

REPORT INFORMATION
  Report Type: Report from Study
  Country: US (occurrence: US)
  Receive Date: 20180728
  Receipt Date: 20180728
  Transmission Date: 20181010
  Serious: Yes (Hospitalization, Other)
  Sender: FDA-Public Use
  Company Number: PHEH2018US030361

PATIENT
  Age: 68 Year
  Sex: Male
  Weight: 92.53 kg

DRUGS (17)
  1. GLIMEPIRIDE. [Concomitant]
     Active Substance: GLIMEPIRIDE
     Indication: PRODUCT USED FOR UNKNOWN INDICATION
     Dosage: 4 MG, QD
     Route: 048
  2. PANTOPRAZOLE SODIUM. [Concomitant]
     Active Substance: PANTOPRAZOLE SODIUM
     Indication: PRODUCT USED FOR UNKNOWN INDICATION
     Dosage: 1000 MG, QD
     Route: 048
  3. ALLOPURINOL. [Concomitant]
     Active Substance: ALLOPURINOL
     Indication: PRODUCT USED FOR UNKNOWN INDICATION
     Dosage: 300 MG, UNK
     Route: 048
  4. ENTRESTO [Suspect]
     Active Substance: SACUBITRIL\VALSARTAN
     Indication: CARDIAC FAILURE CHRONIC
     Dosage: (SACUBITRIL 49 MG/VALSARTAN 51 MG)
     Route: 048
  5. PLAVIX [Concomitant]
     Active Substance: CLOPIDOGREL BISULFATE
     Indication: PRODUCT USED FOR UNKNOWN INDICATION
     Dosage: 75 MG, QD
     Route: 048
  6. LASIX [Concomitant]
     Active Substance: FUROSEMIDE
     Indication: PRODUCT USED FOR UNKNOWN INDICATION
     Dosage: 40 MG, QD
     Route: 048
  7. ASPIRIN. [Concomitant]
     Active Substance: ASPIRIN
     Indication: PRODUCT USED FOR UNKNOWN INDICATION
     Dosage: 81 MG, QD
     Route: 048
  8. CLOPIDOGREL BISULFATE. [Concomitant]
     Active Substance: CLOPIDOGREL BISULFATE
     Indication: PRODUCT USED FOR UNKNOWN INDICATION
     Dosage: 75 MG, QD
     Route: 048
  9. ENTRESTO [Suspect]
     Active Substance: SACUBITRIL\VALSARTAN
     Dosage: BID (SACUBITRIL 24 MG/VALSARTAN 26 MG)
     Route: 048
     Dates: start: 20180624
  10. ATORVASTATIN [Concomitant]
     Active Substance: ATORVASTATIN
     Indication: PRODUCT USED FOR UNKNOWN INDICATION
     Dosage: 80 MG, QID AT BED TIME
     Route: 048
  11. DIGOXIN. [Concomitant]
     Active Substance: DIGOXIN
     Indication: PRODUCT USED FOR UNKNOWN INDICATION
     Dosage: 0.125 MG, QD
     Route: 048
  12. ENTRESTO [Suspect]
     Active Substance: SACUBITRIL\VALSARTAN
     Dosage: BID (SACUBITRIL 24 MG/VALSARTAN 26 MG)
     Route: 048
     Dates: start: 201805
  13. ASA [Concomitant]
     Active Substance: ASPIRIN
     Indication: PRODUCT USED FOR UNKNOWN INDICATION
     Dosage: 81 MG, QD
     Route: 048
  14. CARVEDILOL. [Concomitant]
     Active Substance: CARVEDILOL
     Indication: PRODUCT USED FOR UNKNOWN INDICATION
     Dosage: 25 MG, BID
     Route: 048
  15. LYRICA [Concomitant]
     Active Substance: PREGABALIN
     Indication: PRODUCT USED FOR UNKNOWN INDICATION
     Dosage: 100 MG, TID
     Route: 048
  16. METFORMIN HCL [Concomitant]
     Active Substance: METFORMIN HYDROCHLORIDE
     Dosage: 1000 MG, BID
     Route: 048
  17. ATORVASTATIN CALCIUM. [Concomitant]
     Active Substance: ATORVASTATIN CALCIUM
     Indication: PRODUCT USED FOR UNKNOWN INDICATION
     Dosage: 80 MG, QHS
     Route: 048

REACTIONS (51)
  - Constipation [Unknown]
  - Gout [Unknown]
  - Ingrowing nail [Unknown]
  - Spinal osteoarthritis [Unknown]
  - Type 2 diabetes mellitus [Unknown]
  - Haemorrhage [Unknown]
  - Abdominal pain [Unknown]
  - Intervertebral disc degeneration [Unknown]
  - Lumbar radiculopathy [Unknown]
  - Osteoarthritis [Unknown]
  - Post herpetic neuralgia [Unknown]
  - Dyspnoea [Recovering/Resolving]
  - Chest pain [Recovered/Resolved]
  - Anaemia [Unknown]
  - Somnolence [Unknown]
  - Musculoskeletal pain [Unknown]
  - Sinus bradycardia [Unknown]
  - Chronic kidney disease [Unknown]
  - Depression [Unknown]
  - Hypertension [Unknown]
  - Petechiae [Unknown]
  - Tinea cruris [Unknown]
  - Chronic left ventricular failure [Recovering/Resolving]
  - Coronary artery disease [Unknown]
  - Hypothyroidism [Unknown]
  - Sleep disorder [Unknown]
  - Tremor [Unknown]
  - Cardiomyopathy [Unknown]
  - Eczema [Unknown]
  - Fatigue [Unknown]
  - Gastrooesophageal reflux disease [Unknown]
  - Obesity [Unknown]
  - Dyspepsia [Unknown]
  - Angina pectoris [Unknown]
  - Benign prostatic hyperplasia [Unknown]
  - Neck pain [Unknown]
  - Diabetic neuropathy [Unknown]
  - Dyspnoea exertional [Unknown]
  - Facet joint syndrome [Unknown]
  - Back pain [Unknown]
  - Adenoma benign [Unknown]
  - Device failure [Unknown]
  - Troponin increased [Unknown]
  - Atrioventricular block complete [Unknown]
  - Groin pain [Unknown]
  - Hyperlipidaemia [Unknown]
  - Insomnia [Unknown]
  - Arthralgia [Unknown]
  - Lumbar spinal stenosis [Unknown]
  - Paronychia [Unknown]
  - Ecchymosis [Unknown]

NARRATIVE: CASE EVENT DATE: 20180624
